FAERS Safety Report 18195954 (Version 1)
Quarter: 2020Q3

REPORT INFORMATION
  Report Type: Spontaneous
  Country: GB (occurrence: GB)
  Receive Date: 20200826
  Receipt Date: 20200826
  Transmission Date: 20201103
  Serious: Yes (Disabling)
  Sender: FDA-Public Use
  Company Number: GB-TEVA-2020-GB-1819749

PATIENT
  Age: 58 Year
  Sex: Female

DRUGS (13)
  1. CITALOPRAM [Concomitant]
     Active Substance: CITALOPRAM HYDROBROMIDE
     Dosage: 1 DOSAGE FORMS DAILY; IN THE MORNING WITH ...
     Dates: start: 20200327
  2. SALBUTAMOL [Concomitant]
     Active Substance: ALBUTEROL
     Dosage: ONE OR TWO PUFFS TO BE INHALED WHEN NEEDED
     Route: 055
     Dates: start: 20200327
  3. BISACODYL. [Concomitant]
     Active Substance: BISACODYL
     Dosage: 1 DOSAGE FORMS DAILY; AT NIGHT
     Dates: start: 20200327
  4. FOSTAIR [Concomitant]
     Active Substance: BECLOMETHASONE\FORMOTEROL
     Dosage: BECLOMETASONE DIPROPIONATE 100MICROGRAMS
     Dates: start: 20200327
  5. AMITRIPTYLINE HYDROCHLORIDE. [Concomitant]
     Active Substance: AMITRIPTYLINE HYDROCHLORIDE
     Dosage: TAKE ONE TABLET AT NIGHT FOR ONE WEEK THEN TWO ...
     Dates: start: 20200505, end: 20200602
  6. PREGABALIN. [Suspect]
     Active Substance: PREGABALIN
     Dosage: TAKE ONE CAPSULE THREE TIMES A DAY STARTING 7/7/20 THEN TWO THREE TIMES A DAY FROM 14/7/20
     Dates: start: 20200630, end: 20200728
  7. MONTELUKAST [Concomitant]
     Active Substance: MONTELUKAST SODIUM
     Dosage: 1 DOSAGE FORMS DAILY; AT NIGHT
     Dates: start: 20200624, end: 20200722
  8. CETIRIZINE [Concomitant]
     Active Substance: CETIRIZINE HYDROCHLORIDE
     Dates: start: 20200327
  9. LONGTEC [Concomitant]
     Active Substance: OXYCODONE HYDROCHLORIDE
     Dates: start: 20200327
  10. OXYCODONE HYDROCHLORIDE. [Concomitant]
     Active Substance: OXYCODONE HYDROCHLORIDE
     Dosage: TAKE ONE TABLET UP TO FOUR TIMES A DAY
     Dates: start: 20200327
  11. DULOXETINE. [Concomitant]
     Active Substance: DULOXETINE
     Dosage: 1 DOSAGE FORMS DAILY; AT NIGHT STARTING 13/7/20
     Dates: start: 20200707
  12. PREDNISOLONE. [Concomitant]
     Active Substance: PREDNISOLONE
     Dosage: 6 DOSAGE FORMS DAILY; IN MORNING AFTER BREAKFAST FOR 5 DAYS
     Dates: start: 20200707
  13. LANSOPRAZOLE. [Concomitant]
     Active Substance: LANSOPRAZOLE
     Dates: start: 20200327

REACTIONS (2)
  - Gastrooesophageal reflux disease [Recovered/Resolved]
  - Dyspnoea [Recovered/Resolved]

NARRATIVE: CASE EVENT DATE: 20200728
